FAERS Safety Report 9167462 (Version 1)
Quarter: 2013Q1

REPORT INFORMATION
  Report Type: Spontaneous
  Country: US (occurrence: None)
  Receive Date: 20130313
  Receipt Date: 20130313
  Transmission Date: 20140127
  Serious: Yes (Death)
  Sender: FDA-Public Use
  Company Number: None

PATIENT
  Sex: Male

DRUGS (1)
  1. XTANDI 40MG ASTELLAS [Suspect]
     Dosage: 4 CAPS QD PO?~ 1 MONTH

REACTIONS (1)
  - Cardiac disorder [None]
